FAERS Safety Report 8175873-X (Version None)
Quarter: 2012Q1

REPORT INFORMATION
  Report Type: 
  Country: None (occurrence: None)
  Receive Date: 20120301
  Receipt Date: 20120227
  Transmission Date: 20120608
  Serious: Yes (Hospitalization, Other)
  Sender: FDA-Public Use
  Company Number: MT-ABBOTT-09P-103-0602821-00

PATIENT
  Age: 82 Year
  Sex: Female

DRUGS (3)
  1. CLARITHROMYCIN [Suspect]
     Indication: BRONCHITIS
     Route: 048
     Dates: start: 20090929, end: 20091009
  2. BENZOFLUAZIDE [Concomitant]
     Indication: HYPERTENSION
     Route: 048
  3. AMLODIPINE [Concomitant]
     Indication: HYPERTENSION
     Route: 048

REACTIONS (4)
  - DECREASED APPETITE [None]
  - MALAISE [None]
  - LIVER FUNCTION TEST ABNORMAL [None]
  - FATIGUE [None]
